FAERS Safety Report 15937581 (Version 1)
Quarter: 2019Q1

REPORT INFORMATION
  Report Type: Report from Study
  Country: None (occurrence: US)
  Receive Date: 20190208
  Receipt Date: 20190208
  Transmission Date: 20190417
  Serious: Yes (Hospitalization)
  Sender: FDA-Public Use
  Company Number: US-ABBVIE-19S-163-2658091-00

PATIENT
  Age: 61 Year
  Sex: Male
  Weight: 81.72 kg

DRUGS (5)
  1. CREON [Suspect]
     Active Substance: PANCRELIPASE AMYLASE\PANCRELIPASE LIPASE\PANCRELIPASE PROTEASE
     Indication: PANCREATIC CARCINOMA
     Dosage: 2 WITH MEALS THREE TIMES A DAY 1 CAP WITH SNACKS
     Route: 048
     Dates: start: 2018
  2. LITHIUM. [Concomitant]
     Active Substance: LITHIUM
     Indication: BIPOLAR DISORDER
  3. SEROQUEL [Concomitant]
     Active Substance: QUETIAPINE FUMARATE
     Indication: ANXIETY
  4. OXYCODONE [Concomitant]
     Active Substance: OXYCODONE
     Indication: ABDOMINAL PAIN UPPER
  5. VALIUM [Concomitant]
     Active Substance: DIAZEPAM
     Indication: ANXIETY

REACTIONS (4)
  - Pneumonia [Recovered/Resolved]
  - Aphasia [Recovered/Resolved]
  - Hallucination [Recovered/Resolved]
  - Abdominal pain upper [Recovered/Resolved]

NARRATIVE: CASE EVENT DATE: 20190101
